FAERS Safety Report 24056194 (Version 3)
Quarter: 2024Q3

REPORT INFORMATION
  Report Type: Spontaneous
  Country: BR (occurrence: BR)
  Receive Date: 20240705
  Receipt Date: 20240920
  Transmission Date: 20241016
  Serious: Yes (Other)
  Sender: GLAXOSMITHKLINE
  Company Number: BR-GLAXOSMITHKLINE-BR2024AMR081375

PATIENT

DRUGS (4)
  1. MEPOLIZUMAB [Suspect]
     Active Substance: MEPOLIZUMAB
     Indication: Asthma
     Dosage: UNK
     Dates: start: 20230505, end: 20240614
  2. MEPOLIZUMAB [Suspect]
     Active Substance: MEPOLIZUMAB
     Indication: Chronic rhinosinusitis with nasal polyps
  3. BUDESONIDE\FORMOTEROL [Concomitant]
     Active Substance: BUDESONIDE\FORMOTEROL
     Indication: Product used for unknown indication
     Dosage: UNK, 12/400 MCG, TID
  4. BUDESONIDE [Concomitant]
     Active Substance: BUDESONIDE
     Indication: Product used for unknown indication
     Dosage: 32 UG, BID, NASAL LAVAGE TWICE A DAY

REACTIONS (22)
  - Neuromyopathy [Recovering/Resolving]
  - Cervical spinal stenosis [Recovering/Resolving]
  - Cerebral small vessel ischaemic disease [Recovering/Resolving]
  - Cerebral venous sinus thrombosis [Recovering/Resolving]
  - Fatigue [Recovering/Resolving]
  - Pain in extremity [Recovering/Resolving]
  - Muscular weakness [Recovering/Resolving]
  - Asthenia [Recovering/Resolving]
  - Myopathy [Recovering/Resolving]
  - Cardiopulmonary exercise test abnormal [Recovering/Resolving]
  - Malaise [Recovering/Resolving]
  - Depression [Recovered/Resolved]
  - Hyperreflexia [Recovering/Resolving]
  - Intervertebral disc degeneration [Recovering/Resolving]
  - Intervertebral disc protrusion [Recovering/Resolving]
  - Hypertrophy [Recovering/Resolving]
  - Vertebral foraminal stenosis [Recovering/Resolving]
  - Haemangioma [Recovering/Resolving]
  - Arthralgia [Recovering/Resolving]
  - Pain [Not Recovered/Not Resolved]
  - Condition aggravated [Recovering/Resolving]
  - Inappropriate schedule of product administration [Unknown]

NARRATIVE: CASE EVENT DATE: 20240401
